FAERS Safety Report 18406128 (Version 3)
Quarter: 2020Q4

REPORT INFORMATION
  Report Type: Spontaneous
  Country: RU (occurrence: RU)
  Receive Date: 20201020
  Receipt Date: 20201104
  Transmission Date: 20210114
  Serious: Yes (Death, Hospitalization, Other)
  Sender: FDA-Public Use
  Company Number: NVSC2020RU281634

PATIENT
  Age: 61 Year
  Sex: Male

DRUGS (2)
  1. COSENTYX [Suspect]
     Active Substance: SECUKINUMAB
     Indication: PSORIATIC ARTHROPATHY
     Dosage: 300 MG
     Route: 065
     Dates: start: 2017, end: 20200826
  2. METORTRIT [Concomitant]
     Indication: PRODUCT USED FOR UNKNOWN INDICATION
     Dosage: 10 MG
     Route: 065

REACTIONS (4)
  - Illness [Unknown]
  - Death [Fatal]
  - SARS-CoV-2 test positive [Unknown]
  - Pneumonia viral [Unknown]

NARRATIVE: CASE EVENT DATE: 202009
